FAERS Safety Report 19557978 (Version 1)
Quarter: 2021Q3

REPORT INFORMATION
  Report Type: Report from Study
  Country: DO (occurrence: DO)
  Receive Date: 20210714
  Receipt Date: 20210714
  Transmission Date: 20211014
  Serious: Yes (Other)
  Sender: FDA-Public Use
  Company Number: NVSC2021DO155233

PATIENT
  Age: 72 Year
  Sex: Female

DRUGS (1)
  1. EXELON [Suspect]
     Active Substance: RIVASTIGMINE TARTRATE
     Indication: PRODUCT USED FOR UNKNOWN INDICATION
     Dosage: 13.3 MG, QD (27 MG RIVASTIGMINE BASE (PATCH 15 (CM2))
     Route: 065

REACTIONS (3)
  - Dementia Alzheimer^s type [Unknown]
  - Gait disturbance [Unknown]
  - Speech disorder [Unknown]
